FAERS Safety Report 9825588 (Version 2)
Quarter: 2014Q1

REPORT INFORMATION
  Report Type: Spontaneous
  Country: US (occurrence: US)
  Receive Date: 20140117
  Receipt Date: 20140219
  Transmission Date: 20141002
  Serious: No
  Sender: FDA-Public Use
  Company Number: US-PFIZER INC-2014013263

PATIENT
  Age: 53 Year
  Sex: Female
  Weight: 58.96 kg

DRUGS (5)
  1. TRIAZOLAM [Suspect]
     Indication: SLEEP DISORDER
     Dosage: 0.25 MG, 1X/DAY
     Route: 048
     Dates: end: 20140115
  2. TRAMADOL [Concomitant]
     Dosage: 400 MG (50MG EIGHT TABLETS), DAILY
  3. SIMVASTATIN [Concomitant]
     Dosage: 40 MG, 1X/DAY
  4. PAROXETINE [Concomitant]
     Dosage: 40 MG, 1X/DAY
  5. GABAPENTIN [Concomitant]
     Dosage: 800 MG, 3X/DAY

REACTIONS (2)
  - Drug effect delayed [Unknown]
  - Product packaging quantity issue [Unknown]
